FAERS Safety Report 9154199 (Version 1)
Quarter: 2013Q1

REPORT INFORMATION
  Report Type: Spontaneous
  Country: US (occurrence: US)
  Receive Date: 20130311
  Receipt Date: 20130311
  Transmission Date: 20140127
  Serious: No
  Sender: FDA-Public Use
  Company Number: US-PFIZER INC-2013080273

PATIENT
  Age: 60 Year
  Sex: Female
  Weight: 83.9 kg

DRUGS (2)
  1. CORGARD [Suspect]
     Indication: ATRIAL TACHYCARDIA
     Dosage: 40 MG, DAILY
  2. NADOLOL [Suspect]
     Indication: ATRIAL TACHYCARDIA
     Dosage: 40 MG, DAILY

REACTIONS (1)
  - Fibromyalgia [Unknown]
